FAERS Safety Report 9975810 (Version 1)
Quarter: 2014Q1

REPORT INFORMATION
  Report Type: Spontaneous
  Country: GB (occurrence: GB)
  Receive Date: 20140306
  Receipt Date: 20140306
  Transmission Date: 20141002
  Serious: Yes (Hospitalization)
  Sender: FDA-Public Use
  Company Number: GB-UCBSA-113627

PATIENT
  Sex: Female

DRUGS (2)
  1. KEPPRA [Suspect]
     Indication: EPILEPSY
     Dosage: FOR A LONG TIME
  2. KEPPRA [Suspect]
     Indication: EPILEPSY
     Dosage: 1 G IN THE MORNING AND 500 MG AT NIGHT

REACTIONS (2)
  - Mental disorder [Unknown]
  - Incorrect dose administered [Not Recovered/Not Resolved]
